FAERS Safety Report 10046837 (Version 1)
Quarter: 2014Q1

REPORT INFORMATION
  Report Type: Report from Study
  Country: DE (occurrence: DE)
  Receive Date: 20140331
  Receipt Date: 20140331
  Transmission Date: 20141002
  Serious: Yes (Hospitalization)
  Sender: FDA-Public Use
  Company Number: PHHY2014DE036975

PATIENT
  Sex: Female
  Weight: 64 kg

DRUGS (4)
  1. FTY 720 [Suspect]
     Indication: MULTIPLE SCLEROSIS
     Dosage: 0.5 MG, QD
     Route: 048
     Dates: start: 20121015
  2. IBUPROFEN W/PSEUDOEPHEDRINE [Suspect]
     Indication: NASOPHARYNGITIS
     Dosage: 200/30MG DAILY
     Route: 048
     Dates: start: 20140116, end: 20140116
  3. FLUCTIN [Concomitant]
     Indication: FATIGUE
     Dosage: 20 MG, QD
     Route: 048
     Dates: start: 20130108
  4. JUBRELE [Concomitant]
     Indication: CONTRACEPTION
     Dosage: 75 UG, QD
     Route: 048
     Dates: start: 20130225

REACTIONS (3)
  - Immune thrombocytopenic purpura [Recovered/Resolved]
  - Thrombocytopenia [Recovered/Resolved]
  - Petechiae [Recovered/Resolved]
